FAERS Safety Report 19716348 (Version 1)
Quarter: 2021Q3

REPORT INFORMATION
  Report Type: Spontaneous
  Country: FR (occurrence: FR)
  Receive Date: 20210818
  Receipt Date: 20210818
  Transmission Date: 20211014
  Serious: Yes (Hospitalization)
  Sender: FDA-Public Use
  Company Number: FR-GALDERMA-FR2021015102

PATIENT

DRUGS (2)
  1. CUTACNYL 5% (BENZOYL PEROXIDE) [Suspect]
     Active Substance: BENZOYL PEROXIDE
     Indication: ACNE
     Dosage: 1 DOSAGE FORM
     Route: 003
     Dates: start: 202101, end: 20210228
  2. DIFFERIN [Suspect]
     Active Substance: ADAPALENE
     Indication: ACNE
     Dosage: 1 DOSAGE FORM
     Route: 003
     Dates: start: 202101, end: 20210228

REACTIONS (3)
  - Dysphagia [Recovered/Resolved]
  - Face oedema [Recovered/Resolved]
  - Erythema [Recovered/Resolved]

NARRATIVE: CASE EVENT DATE: 20210228
